FAERS Safety Report 8168914-7 (Version None)
Quarter: 2012Q1

REPORT INFORMATION
  Report Type: 
  Country: None (occurrence: None)
  Receive Date: 20120227
  Receipt Date: 20120217
  Transmission Date: 20120608
  Serious: Yes (Other)
  Sender: FDA-Public Use
  Company Number: PT-GILEAD-2012-0050016

PATIENT
  Age: 56 Year
  Sex: Female

DRUGS (10)
  1. OLANZAPINE [Concomitant]
  2. MIRTAZAPINE [Concomitant]
  3. LORSEDAL [Concomitant]
  4. PRAVASTATIN [Concomitant]
     Indication: LIPIDS
  5. LAMOTIGIN [Concomitant]
  6. TRUVADA [Suspect]
     Indication: HIV INFECTION
     Dosage: UNK
     Dates: start: 20081201
  7. FENOFIBRATE [Concomitant]
  8. REYATAZ [Concomitant]
  9. COLECALCIFEROL [Concomitant]
  10. METFORMIN HCL [Concomitant]
     Indication: BLOOD GLUCOSE

REACTIONS (1)
  - OSTEONECROSIS [None]
